FAERS Safety Report 13120512 (Version 2)
Quarter: 2017Q1

REPORT INFORMATION
  Report Type: Spontaneous
  Country: US (occurrence: US)
  Receive Date: 20170117
  Receipt Date: 20170221
  Transmission Date: 20170428
  Serious: Yes (Other)
  Sender: FDA-Public Use
  Company Number: US-PFIZER INC-2017015317

PATIENT
  Age: 4 Year
  Sex: Male

DRUGS (4)
  1. CLOFARABINE [Suspect]
     Active Substance: CLOFARABINE
     Indication: MYELOID LEUKAEMIA
     Dosage: UNK
  2. METRONIDAZOLE. [Concomitant]
     Active Substance: METRONIDAZOLE
     Indication: CLOSTRIDIUM DIFFICILE INFECTION
     Dosage: UNK
     Dates: start: 20161115, end: 20161125
  3. MYLOTARG [Suspect]
     Active Substance: GEMTUZUMAB OZOGAMICIN
     Indication: ACUTE MYELOID LEUKAEMIA
     Dosage: 2.2 MG (Q 72 HRS X 2 )
     Route: 042
     Dates: start: 20170113, end: 20170116
  4. CYTARABINE. [Suspect]
     Active Substance: CYTARABINE
     Indication: MYELOID LEUKAEMIA
     Dosage: UNK

REACTIONS (2)
  - Clostridium difficile infection [Recovered/Resolved]
  - Neoplasm progression [Recovering/Resolving]

NARRATIVE: CASE EVENT DATE: 20161003
